FAERS Safety Report 15209853 (Version 1)
Quarter: 2018Q3

REPORT INFORMATION
  Report Type: Report from Study
  Country: US (occurrence: US)
  Receive Date: 20180727
  Receipt Date: 20180727
  Transmission Date: 20181010
  Serious: Yes (Death, Hospitalization)
  Sender: FDA-Public Use
  Company Number: US-ACTELION-A-NJ2018-172105

PATIENT
  Age: 58 Year
  Sex: Female

DRUGS (1)
  1. TRACLEER [Suspect]
     Active Substance: BOSENTAN
     Indication: PULMONARY ARTERIAL HYPERTENSION
     Dosage: 125 MG, BID
     Route: 048
     Dates: start: 20180314

REACTIONS (4)
  - Death [Fatal]
  - Pain in extremity [Unknown]
  - Right ventricular failure [Unknown]
  - Fluid overload [Unknown]

NARRATIVE: CASE EVENT DATE: 20180424
